FAERS Safety Report 7073604-8 (Version None)
Quarter: 2010Q4

REPORT INFORMATION
  Report Type: 
  Country: None (occurrence: None)
  Receive Date: 20101029
  Receipt Date: 20100715
  Transmission Date: 20110411
  Serious: No
  Sender: FDA-Public Use
  Company Number: A0870646A

PATIENT
  Age: 72 Year
  Sex: Female

DRUGS (13)
  1. ADVAIR DISKUS 100/50 [Suspect]
     Dosage: 1PUFF TWICE PER DAY
     Route: 055
     Dates: start: 20100501, end: 20100708
  2. VERAPAMIL [Concomitant]
  3. LIPITOR [Concomitant]
  4. ASPIRIN [Concomitant]
  5. MAXZIDE [Concomitant]
  6. METFORMIN [Concomitant]
  7. FOSAMAX [Concomitant]
  8. CALCIUM [Concomitant]
  9. VITAMIN D [Concomitant]
  10. MAGNESIUM [Concomitant]
  11. PROAIR HFA [Concomitant]
  12. VITAMIN B-12 [Concomitant]
  13. VALIUM [Concomitant]

REACTIONS (5)
  - CANDIDIASIS [None]
  - DRUG INEFFECTIVE [None]
  - ORAL DISORDER [None]
  - OROPHARYNGEAL PAIN [None]
  - TONGUE DISCOLOURATION [None]
